FAERS Safety Report 25367433 (Version 1)
Quarter: 2025Q2

REPORT INFORMATION
  Report Type: Spontaneous
  Country: US (occurrence: US)
  Receive Date: 20250528
  Receipt Date: 20250528
  Transmission Date: 20250716
  Serious: No
  Sender: Unknown Manufacturer
  Company Number: US-MIRUM PHARMACEUTICALS, INC.-US-MIR-24-00974

PATIENT
  Sex: Female

DRUGS (2)
  1. LIVMARLI [Suspect]
     Active Substance: MARALIXIBAT CHLORIDE
     Indication: Alagille syndrome
     Dosage: UNK, QD
     Route: 065
     Dates: start: 20230224
  2. LIVMARLI [Suspect]
     Active Substance: MARALIXIBAT CHLORIDE
     Indication: Pruritus

REACTIONS (2)
  - Migraine [Unknown]
  - Malaise [Unknown]
